FAERS Safety Report 25082496 (Version 1)
Quarter: 2025Q1

REPORT INFORMATION
  Report Type: Spontaneous
  Country: CA (occurrence: CA)
  Receive Date: 20250317
  Receipt Date: 20250317
  Transmission Date: 20250408
  Serious: Yes (Hospitalization)
  Sender: ABBVIE
  Company Number: None

PATIENT
  Age: 32 Year
  Sex: Male

DRUGS (2)
  1. ESCITALOPRAM [Suspect]
     Active Substance: ESCITALOPRAM OXALATE
     Indication: Depression
     Dosage: FORM: UNKNOWN
     Route: 048
  2. OXAZEPAM [Concomitant]
     Active Substance: OXAZEPAM
     Indication: Product used for unknown indication
     Route: 065

REACTIONS (8)
  - Endotracheal intubation [Unknown]
  - Clonus [Unknown]
  - Mechanical ventilation [Unknown]
  - Hyperthermia [Unknown]
  - Agitation [Unknown]
  - Mydriasis [Unknown]
  - Serotonin syndrome [Unknown]
  - Tachycardia [Unknown]
